FAERS Safety Report 4852685-3 (Version None)
Quarter: 2005Q4

REPORT INFORMATION
  Report Type: 
  Country: None (occurrence: None)
  Receive Date: 20051125
  Receipt Date: 20050627
  Transmission Date: 20060501
  Serious: Yes (Other)
  Sender: FDA-Public Use
  Company Number: 2005078715

PATIENT
  Sex: Male

DRUGS (5)
  1. TIKOSYN [Suspect]
     Indication: ATRIAL FIBRILLATION
     Dosage: ORAL; 1 MG (0.5 MG, BID), ORAL
     Route: 048
     Dates: start: 20040101
  2. TIKOSYN [Suspect]
     Indication: ATRIAL FIBRILLATION
     Dosage: ORAL; 1 MG (0.5 MG, BID), ORAL
     Route: 048
     Dates: start: 20050101
  3. LIPITOR [Concomitant]
  4. COUMADIN [Concomitant]
  5. LISINOPRIL [Concomitant]

REACTIONS (3)
  - DRUG INEFFECTIVE [None]
  - RASH [None]
  - TOOTHACHE [None]
